FAERS Safety Report 17150343 (Version 1)
Quarter: 2019Q4

REPORT INFORMATION
  Report Type: Spontaneous
  Country: US (occurrence: US)
  Receive Date: 20191213
  Receipt Date: 20191213
  Transmission Date: 20200122
  Serious: No
  Sender: FDA-Public Use
  Company Number: US-TEVA-2019-US-1152753

PATIENT
  Age: 72 Year
  Sex: Female

DRUGS (1)
  1. RISEDRONATE SODIUM. [Suspect]
     Active Substance: RISEDRONATE SODIUM
     Route: 065

REACTIONS (2)
  - Arthralgia [Unknown]
  - Insomnia [Unknown]

NARRATIVE: CASE EVENT DATE: 201906
